FAERS Safety Report 6243215-2 (Version None)
Quarter: 2009Q2

REPORT INFORMATION
  Report Type: 
  Country: None (occurrence: None)
  Receive Date: 20090624
  Receipt Date: 20090615
  Transmission Date: 20091009
  Serious: Yes (Other)
  Sender: FDA-Public Use
  Company Number: US-BAYER-200911811BCC

PATIENT
  Sex: Male

DRUGS (2)
  1. ASPIRIN [Suspect]
     Indication: STENT PLACEMENT
     Route: 065
  2. PLAVIX [Concomitant]
     Indication: STENT PLACEMENT
     Dosage: TOTAL DAILY DOSE: 75 MG  UNIT DOSE: 75 MG
     Route: 048

REACTIONS (2)
  - RASH [None]
  - VASCULITIS [None]
